FAERS Safety Report 8822121 (Version 2)
Quarter: 2012Q4

REPORT INFORMATION
  Report Type: 
  Country: GB (occurrence: GB)
  Receive Date: 20121003
  Receipt Date: 20121026
  Transmission Date: 20130627
  Serious: Yes (Disabling, Other)
  Sender: FDA-Public Use
  Company Number: GB-RANBAXY-2012RR-59856

PATIENT
  Sex: Female
  Weight: 63 kg

DRUGS (3)
  1. TOPIRAMATE [Suspect]
     Indication: MIGRAINE
     Dosage: 25 mg, UNK
     Route: 048
  2. TOPIRAMATE [Suspect]
     Indication: HEADACHE
     Dosage: 50 mg, bid
     Route: 048
     Dates: start: 20091130, end: 20120904
  3. TOPIRAMATE [Suspect]
     Dosage: UNK
     Route: 065

REACTIONS (4)
  - Pain in extremity [Not Recovered/Not Resolved]
  - Sensation of heaviness [Unknown]
  - Muscular weakness [Recovered/Resolved]
  - Pain in extremity [Not Recovered/Not Resolved]
